FAERS Safety Report 20450839 (Version 5)
Quarter: 2022Q1

REPORT INFORMATION
  Report Type: Report from Study
  Country: JP (occurrence: None)
  Receive Date: 20220209
  Receipt Date: 20220224
  Transmission Date: 20220423
  Serious: Yes (Hospitalization)
  Sender: FDA-Public Use
  Company Number: JP-Eisai Medical Research-EC-2022-107996

PATIENT
  Age: 60 Year
  Sex: Female
  Weight: 45.5 kg

DRUGS (13)
  1. LENVATINIB [Suspect]
     Active Substance: LENVATINIB
     Indication: Renal cell carcinoma
     Route: 048
     Dates: start: 20220118
  2. BELZUTIFAN [Suspect]
     Active Substance: BELZUTIFAN
     Indication: Renal cell carcinoma
     Dates: start: 20220118, end: 20220131
  3. TEMOCAPRIL HYDROCHLORIDE [Suspect]
     Active Substance: TEMOCAPRIL HYDROCHLORIDE
     Indication: Product used for unknown indication
  4. ATENOLOL [Concomitant]
     Active Substance: ATENOLOL
     Dates: start: 20211220, end: 20220201
  5. SODIUM FERROUS CITRATE [Concomitant]
     Active Substance: SODIUM FERROUS CITRATE
     Dates: start: 20211224, end: 20220201
  6. DOXAZOSIN [Concomitant]
     Active Substance: DOXAZOSIN MESYLATE
     Dates: start: 20211220, end: 20220201
  7. BEZAFIBRATE [Concomitant]
     Active Substance: BEZAFIBRATE
     Dates: start: 20211220, end: 20220201
  8. TRICHLORMETHIAZIDE [Concomitant]
     Active Substance: TRICHLORMETHIAZIDE
     Dates: start: 20211220, end: 20220201
  9. CANDESARTAN [Concomitant]
     Active Substance: CANDESARTAN
     Dates: start: 20211220, end: 20220201
  10. CALONAL [Concomitant]
     Active Substance: ACETAMINOPHEN
     Dates: start: 20211220, end: 20220201
  11. CELECOXIB [Concomitant]
     Active Substance: CELECOXIB
     Dates: start: 20211220
  12. TRAMADOL [Concomitant]
     Active Substance: TRAMADOL
     Dates: start: 20211220
  13. VONOPRAZAN FUMARATE [Concomitant]
     Active Substance: VONOPRAZAN FUMARATE
     Dates: start: 20211220

REACTIONS (3)
  - Hepatic function abnormal [Recovering/Resolving]
  - Lymphocyte count decreased [Recovered/Resolved]
  - Rash [Recovering/Resolving]

NARRATIVE: CASE EVENT DATE: 20220201
